FAERS Safety Report 10354952 (Version 1)
Quarter: 2014Q3

REPORT INFORMATION
  Report Type: Spontaneous
  Country: US (occurrence: None)
  Receive Date: 20140729
  Receipt Date: 20140729
  Transmission Date: 20150326
  Serious: Yes (Hospitalization)
  Sender: FDA-Public Use
  Company Number: None

PATIENT
  Age: 39 Year
  Sex: Female
  Weight: 83.9 kg

DRUGS (1)
  1. METHYLENE BLUE. [Suspect]
     Active Substance: METHYLENE BLUE
     Indication: SURGERY
     Dosage: 1 ML ONCE INTRAVENOUS
     Route: 042
     Dates: start: 20140702, end: 20140702

REACTIONS (1)
  - Drug clearance decreased [None]

NARRATIVE: CASE EVENT DATE: 20140702
